FAERS Safety Report 7557836-8 (Version None)
Quarter: 2011Q2

REPORT INFORMATION
  Report Type: 
  Country: None (occurrence: None)
  Receive Date: 20110620
  Receipt Date: 20110616
  Transmission Date: 20111010
  Serious: Yes (Death, Life-Threatening)
  Sender: FDA-Public Use
  Company Number: GB-ABBOTT-10P-167-0694542-00

PATIENT
  Age: 68 Year
  Sex: Male
  Weight: 70 kg

DRUGS (2)
  1. PREDNISOLONE [Concomitant]
     Indication: CROHN'S DISEASE
     Dosage: DOSAGE TEXT: 20-40 MG. DRUG CONTINUED.
     Route: 048
     Dates: start: 20040101
  2. HUMIRA [Suspect]
     Indication: CROHN'S DISEASE
     Route: 058
     Dates: start: 20100901, end: 20101114

REACTIONS (12)
  - OXYGEN SATURATION DECREASED [None]
  - COUGH [None]
  - PYREXIA [None]
  - PNEUMOCYSTIS JIROVECI PNEUMONIA [None]
  - ATRIAL FIBRILLATION [None]
  - PULMONARY EMBOLISM [None]
  - NON-HODGKIN'S LYMPHOMA [None]
  - FAECES DISCOLOURED [None]
  - DYSPNOEA [None]
  - ABDOMINAL DISCOMFORT [None]
  - GASTROINTESTINAL HAEMORRHAGE [None]
  - NAUSEA [None]
